FAERS Safety Report 5026690-0 (Version None)
Quarter: 2006Q2

REPORT INFORMATION
  Report Type: 
  Country: None (occurrence: None)
  Receive Date: 20060608
  Receipt Date: 20060523
  Transmission Date: 20061013
  Serious: Yes (Other)
  Sender: FDA-Public Use
  Company Number: 2006-DE-02633GD

PATIENT
  Age: 38 Year
  Sex: Male
  Weight: 98 kg

DRUGS (6)
  1. PREDNISONE TAB [Suspect]
     Indication: ALLERGIC GRANULOMATOUS ANGIITIS
     Dosage: SEE IMAGE, PO
     Route: 048
     Dates: start: 20041001
  2. METHOTREXATE [Suspect]
     Indication: ALLERGIC GRANULOMATOUS ANGIITIS
     Dosage: 15 MG (WEEKLY)
     Dates: start: 20041001
  3. CYCLOPHOSPHAMIDE [Suspect]
     Indication: ALLERGIC GRANULOMATOUS ANGIITIS
     Dosage: 1-1.4 G PER CYCLE (SCHEDULED WERE 6 CYCLES WITH A 3-WEEK INTERRUPTION)
     Dates: start: 20041201
  4. ACE INHIBITOR ACE (INHIBITOR NOS) [Suspect]
     Indication: CARDIAC FAILURE CONGESTIVE
  5. DIURETICS (DIURETICS) [Suspect]
     Indication: CARDIAC FAILURE CONGESTIVE
  6. ALDOSTERONE (ALDOSTERONE) [Suspect]
     Indication: CARDIAC FAILURE CONGESTIVE

REACTIONS (15)
  - ALLERGIC GRANULOMATOUS ANGIITIS [None]
  - CARDIAC FAILURE [None]
  - CARDIOMYOPATHY [None]
  - DISEASE PROGRESSION [None]
  - DRUG INEFFECTIVE [None]
  - DYSPNOEA [None]
  - EJECTION FRACTION DECREASED [None]
  - EOSINOPHILIA [None]
  - HEART TRANSPLANT [None]
  - LEUKOCYTOSIS [None]
  - OEDEMA PERIPHERAL [None]
  - ORTHOPNOEA [None]
  - PERICARDIAL EFFUSION [None]
  - PNEUMONIA [None]
  - SINUS TACHYCARDIA [None]
